FAERS Safety Report 4508712-6 (Version None)
Quarter: 2004Q4

REPORT INFORMATION
  Report Type: 
  Country: None (occurrence: None)
  Receive Date: 20041122
  Receipt Date: 20041122
  Transmission Date: 20050328
  Serious: Yes (Other)
  Sender: FDA-Public Use
  Company Number: None

PATIENT
  Age: 39 Year
  Sex: Male
  Weight: 79.3795 kg

DRUGS (11)
  1. MEPERIDINE PCA, 300 MG/30 ML    MFD BY ABBOTT [Suspect]
     Indication: ANALGESIC EFFECT
     Dosage: SEE ITEM B5
     Dates: start: 20041005, end: 20041006
  2. HYDROCODONE [Concomitant]
  3. XANAX [Concomitant]
  4. SOMA [Concomitant]
  5. SECONAL [Concomitant]
  6. GENTAMICIN [Concomitant]
  7. VANCOMYCIN [Concomitant]
  8. IV NS [Concomitant]
  9. GENERAL ANESTHETIC [Concomitant]
  10. NICOTINE [Concomitant]
  11. AMBIEN (SECONAL DC'D) [Concomitant]

REACTIONS (1)
  - CONVULSION [None]
